FAERS Safety Report 5444613-7 (Version None)
Quarter: 2007Q3

REPORT INFORMATION
  Report Type: 
  Country: None (occurrence: None)
  Receive Date: 20070906
  Receipt Date: 20061016
  Transmission Date: 20080115
  Serious: Yes (Other)
  Sender: FDA-Public Use
  Company Number: AU-AVENTIS-200620584GDDC

PATIENT
  Age: 48 Year
  Sex: Female

DRUGS (7)
  1. ARAVA [Suspect]
     Indication: RHEUMATOID ARTHRITIS
     Route: 048
     Dates: start: 20030322, end: 20060316
  2. PLAQUENIL [Suspect]
     Dosage: DOSE: UNK
     Dates: end: 20060301
  3. SULINDAC [Suspect]
     Dosage: DOSE: UNK
     Dates: end: 20060301
  4. PREDNISONE [Concomitant]
     Dosage: DOSE: UNK
  5. LOSEC                              /00661201/ [Concomitant]
     Dosage: DOSE: UNK
  6. PROPRANOLOL HYDROCHLORIDE [Concomitant]
     Dosage: DOSE: UNK
  7. NORSPAN                            /00668101/ [Concomitant]
     Dosage: DOSE: UNK

REACTIONS (1)
  - LIVER FUNCTION TEST ABNORMAL [None]
